FAERS Safety Report 19243948 (Version 1)
Quarter: 2021Q2

REPORT INFORMATION
  Report Type: Spontaneous
  Country: US (occurrence: US)
  Receive Date: 20210511
  Receipt Date: 20210511
  Transmission Date: 20210717
  Serious: No
  Sender: FDA-Public Use
  Company Number: US-PFIZER INC-2021229312

PATIENT
  Age: 67 Year
  Sex: Male
  Weight: 104.33 kg

DRUGS (2)
  1. DEPO?TESTOSTERONE [Suspect]
     Active Substance: TESTOSTERONE CYPIONATE
     Dosage: 200 MG/ML, INJECTS INTO HIP MUSCLE EVERY 2 WEEKS
     Route: 030
  2. DEPO?TESTOSTERONE [Suspect]
     Active Substance: TESTOSTERONE CYPIONATE
     Indication: ANDROGEN DEFICIENCY
     Dosage: 1 ML, EVERY 2 WEEKS
     Route: 030

REACTIONS (13)
  - Arthralgia [Unknown]
  - Headache [Unknown]
  - Weight decreased [Unknown]
  - Drug ineffective [Unknown]
  - Pain in extremity [Unknown]
  - Pain [Not Recovered/Not Resolved]
  - Dysstasia [Unknown]
  - Liver disorder [Unknown]
  - Pain [Unknown]
  - Neoplasm [Unknown]
  - Gait disturbance [Not Recovered/Not Resolved]
  - Depressed mood [Unknown]
  - Exostosis [Unknown]

NARRATIVE: CASE EVENT DATE: 20201230
